FAERS Safety Report 18807955 (Version 4)
Quarter: 2021Q1

REPORT INFORMATION
  Report Type: Spontaneous
  Country: JP (occurrence: JP)
  Receive Date: 20210129
  Receipt Date: 20210331
  Transmission Date: 20210419
  Serious: Yes (Death, Disabling, Other)
  Sender: FDA-Public Use
  Company Number: JP-GLAXOSMITHKLINE-JP2020JPN261142

PATIENT
  Age: 76 Year
  Sex: Male
  Weight: 56.4 kg

DRUGS (3)
  1. KLARICID TABLETS [Concomitant]
     Active Substance: CLARITHROMYCIN
     Indication: RESPIRATORY SYMPTOM
     Dosage: 200 MG, QD
     Route: 048
     Dates: start: 20190215, end: 20201125
  2. OXYGEN. [Concomitant]
     Active Substance: OXYGEN
     Dosage: 5L/MINNC
  3. TRELEGY ELLIPTA [Suspect]
     Active Substance: FLUTICASONE FUROATE\UMECLIDINIUM BROMIDE\VILANTEROL TRIFENATATE
     Indication: RESPIRATORY SYMPTOM
     Dosage: 100 UG, QD
     Route: 055
     Dates: start: 20200717, end: 20201016

REACTIONS (24)
  - Respiratory failure [Fatal]
  - Renal impairment [Fatal]
  - Cardio-respiratory arrest [Fatal]
  - Cough [Unknown]
  - Pneumonia bacterial [Fatal]
  - Haemoptysis [Fatal]
  - Pleural effusion [Fatal]
  - Pneumonia cytomegaloviral [Not Recovered/Not Resolved]
  - Serratia infection [Unknown]
  - Bacterial infection [Unknown]
  - Oxygen saturation decreased [Fatal]
  - Organising pneumonia [Not Recovered/Not Resolved]
  - White blood cell count increased [Fatal]
  - Arteriosclerosis [Fatal]
  - Vasodilatation [Fatal]
  - Bronchial haemorrhage [Fatal]
  - Sinus tachycardia [Recovering/Resolving]
  - Dehydration [Unknown]
  - Sputum purulent [Fatal]
  - Anaemia [Fatal]
  - Septic shock [Fatal]
  - Shock haemorrhagic [Fatal]
  - Pyrexia [Fatal]
  - Interstitial lung disease [Not Recovered/Not Resolved]

NARRATIVE: CASE EVENT DATE: 20201016
